FAERS Safety Report 6484080-8 (Version None)
Quarter: 2009Q4

REPORT INFORMATION
  Report Type: 
  Country: None (occurrence: None)
  Receive Date: 20091209
  Receipt Date: 20091130
  Transmission Date: 20100525
  Serious: Yes (Other)
  Sender: FDA-Public Use
  Company Number: US-ASTRAZENECA-2009SE24861

PATIENT
  Age: 45 Year
  Sex: Male
  Weight: 119.7 kg

DRUGS (1)
  1. SYMBICORT [Suspect]
     Route: 055

REACTIONS (2)
  - AGITATION [None]
  - HALLUCINATION, VISUAL [None]
